FAERS Safety Report 5551509-9 (Version None)
Quarter: 2007Q4

REPORT INFORMATION
  Report Type: 
  Country: None (occurrence: None)
  Receive Date: 20071129
  Receipt Date: 20070508
  Transmission Date: 20080405
  Serious: Yes (Hospitalization, Other)
  Sender: FDA-Public Use
  Company Number: US200702001930

PATIENT
  Sex: Male

DRUGS (1)
  1. ZYPREXA [Suspect]
     Dosage: 15 MG, EACH MORNING, 15 MG EACH EVENING
     Dates: start: 19990101

REACTIONS (6)
  - ABDOMINAL PAIN [None]
  - ASTHENIA [None]
  - FATIGUE [None]
  - MALAISE [None]
  - OVERDOSE [None]
  - PANCREATITIS [None]
